FAERS Safety Report 9499867 (Version 1)
Quarter: 2013Q3

REPORT INFORMATION
  Report Type: Spontaneous
  Country: US (occurrence: None)
  Receive Date: 20130904
  Receipt Date: 20130904
  Transmission Date: 20140515
  Serious: Yes (Disabling)
  Sender: FDA-Public Use
  Company Number: None

PATIENT
  Age: 23 Year
  Sex: Male
  Weight: 73.94 kg

DRUGS (1)
  1. CIPROFLOXACIN [Suspect]
     Indication: GASTROENTERITIS
     Route: 048
     Dates: start: 20130313, end: 20130314

REACTIONS (3)
  - Diarrhoea [None]
  - Muscular weakness [None]
  - Muscle contractions involuntary [None]
